FAERS Safety Report 8076595-6 (Version None)
Quarter: 2012Q1

REPORT INFORMATION
  Report Type: 
  Country: None (occurrence: None)
  Receive Date: 20120127
  Receipt Date: 20120116
  Transmission Date: 20120608
  Serious: Yes (Hospitalization)
  Sender: FDA-Public Use
  Company Number: IT-ELI_LILLY_AND_COMPANY-IT201201004718

PATIENT
  Sex: Female

DRUGS (7)
  1. ALIMTA [Suspect]
     Indication: MESOTHELIOMA MALIGNANT
     Dosage: 400 MG, UNK
     Route: 042
     Dates: start: 20110927, end: 20111018
  2. ASPIRIN [Concomitant]
  3. DECADRON [Concomitant]
  4. DOBETIN [Concomitant]
  5. FOLIC ACID [Concomitant]
  6. NORVASC [Concomitant]
  7. OXYCONTIN [Concomitant]

REACTIONS (7)
  - ASTHENIA [None]
  - NAUSEA [None]
  - ANAEMIA [None]
  - HYPOCALCAEMIA [None]
  - DECREASED APPETITE [None]
  - HYPOMAGNESAEMIA [None]
  - HYPOKALAEMIA [None]
